FAERS Safety Report 7127924-9 (Version None)
Quarter: 2010Q4

REPORT INFORMATION
  Report Type: 
  Country: None (occurrence: None)
  Receive Date: 20101130
  Receipt Date: 20101117
  Transmission Date: 20110411
  Serious: Yes (Death)
  Sender: FDA-Public Use
  Company Number: GB-RANBAXY-2010RR-31504

PATIENT
  Sex: Male

DRUGS (1)
  1. RANITIDINE [Suspect]

REACTIONS (7)
  - CHEST PAIN [None]
  - CIRCULATORY COLLAPSE [None]
  - MYOCARDIAL INFARCTION [None]
  - PULSE ABSENT [None]
  - RESPIRATORY ARREST [None]
  - SYNCOPE [None]
  - TACHYCARDIA [None]
